FAERS Safety Report 25307081 (Version 1)
Quarter: 2025Q2

REPORT INFORMATION
  Report Type: Spontaneous
  Country: SI (occurrence: SI)
  Receive Date: 20250513
  Receipt Date: 20250513
  Transmission Date: 20250716
  Serious: Yes (Death, Other)
  Sender: TAKEDA
  Company Number: SI-INCYTE CORPORATION-2025IN004958

PATIENT
  Sex: Female

DRUGS (6)
  1. ICLUSIG [Suspect]
     Active Substance: PONATINIB HYDROCHLORIDE
     Indication: Chronic myeloid leukaemia
  2. ICLUSIG [Suspect]
     Active Substance: PONATINIB HYDROCHLORIDE
  3. ICLUSIG [Suspect]
     Active Substance: PONATINIB HYDROCHLORIDE
  4. ICLUSIG [Suspect]
     Active Substance: PONATINIB HYDROCHLORIDE
  5. METHYLPREDNISOLONE [Concomitant]
     Active Substance: METHYLPREDNISOLONE
     Indication: Product used for unknown indication
  6. RITUXIMAB [Concomitant]
     Active Substance: RITUXIMAB
     Indication: Product used for unknown indication

REACTIONS (21)
  - Death [Fatal]
  - Graft versus host disease [Unknown]
  - Pneumonitis [Unknown]
  - Enterocolitis [Unknown]
  - Pneumonia bacterial [Unknown]
  - Graft versus host disease in skin [Unknown]
  - Graft versus host disease in liver [Unknown]
  - Graft versus host disease in lung [Unknown]
  - Pneumonia pseudomonal [Unknown]
  - Acute myeloid leukaemia [Unknown]
  - Pneumonia [Unknown]
  - Pancytopenia [Unknown]
  - Chronic myeloid leukaemia [Unknown]
  - Infection [Unknown]
  - Fungal infection [Unknown]
  - Lymphocyte count abnormal [Unknown]
  - Haemoglobin abnormal [Unknown]
  - Platelet count abnormal [Unknown]
  - Influenza [Unknown]
  - Body temperature abnormal [Unknown]
  - Abdominal pain [Unknown]

NARRATIVE: CASE EVENT DATE: 20170713
